FAERS Safety Report 22534082 (Version 2)
Quarter: 2023Q2

REPORT INFORMATION
  Report Type: Spontaneous
  Country: US (occurrence: US)
  Receive Date: 20230608
  Receipt Date: 20230628
  Transmission Date: 20230721
  Serious: No
  Sender: FDA-Public Use
  Company Number: US-AMGEN-USASP2023096965

PATIENT
  Age: 72 Year
  Sex: Female

DRUGS (1)
  1. TAVNEOS [Suspect]
     Active Substance: AVACOPAN
     Indication: Microscopic polyangiitis
     Dosage: 30 MILLIGRAM, BID
     Route: 048
     Dates: start: 20230606

REACTIONS (5)
  - Eye disorder [Unknown]
  - Mood swings [Unknown]
  - Insomnia [Unknown]
  - Irritability [Unknown]
  - Fatigue [Unknown]

NARRATIVE: CASE EVENT DATE: 20230601
